FAERS Safety Report 7019804-4 (Version None)
Quarter: 2010Q3

REPORT INFORMATION
  Report Type: 
  Country: None (occurrence: None)
  Receive Date: 20100929
  Receipt Date: 20100921
  Transmission Date: 20110219
  Serious: Yes (Other)
  Sender: FDA-Public Use
  Company Number: US-BIOGENIDEC-2010BI033225

PATIENT
  Age: 44 Year
  Sex: Female

DRUGS (1)
  1. AVONEX [Suspect]
     Indication: MULTIPLE SCLEROSIS
     Route: 030
     Dates: start: 20080530

REACTIONS (6)
  - ASTHENIA [None]
  - CHILLS [None]
  - CONVULSION [None]
  - DIZZINESS [None]
  - FEELING HOT [None]
  - LOSS OF CONTROL OF LEGS [None]
